FAERS Safety Report 4666686-1 (Version None)
Quarter: 2005Q2

REPORT INFORMATION
  Report Type: 
  Country: None (occurrence: None)
  Receive Date: 20050519
  Receipt Date: 20050408
  Transmission Date: 20051028
  Serious: Yes (Disabling)
  Sender: FDA-Public Use
  Company Number: PHBS2005IT04975

PATIENT
  Age: 62 Year
  Sex: Female

DRUGS (4)
  1. ZOMETA [Suspect]
     Indication: MULTIPLE MYELOMA
     Dosage: 4 MG, QMO
     Route: 042
     Dates: start: 20020201, end: 20040717
  2. AREDIA [Suspect]
     Indication: MULTIPLE MYELOMA
     Dosage: 90 MG, QMO
     Route: 042
     Dates: start: 19970701, end: 20020131
  3. THALIDOMIDE [Concomitant]
     Indication: MULTIPLE MYELOMA
  4. DEXAMETHASONE [Concomitant]

REACTIONS (2)
  - ASEPTIC NECROSIS BONE [None]
  - JAW OPERATION [None]
